FAERS Safety Report 6381226-7 (Version None)
Quarter: 2009Q3

REPORT INFORMATION
  Report Type: 
  Country: None (occurrence: None)
  Receive Date: 20090923
  Receipt Date: 20090911
  Transmission Date: 20100115
  Serious: Yes (Death, Hospitalization)
  Sender: FDA-Public Use
  Company Number: 007538

PATIENT
  Age: 85 Year
  Sex: Female

DRUGS (5)
  1. PLETAL [Suspect]
     Indication: ARTERIOSCLEROSIS OBLITERANS
     Dosage: 100 MG, BID
     Route: 048
     Dates: start: 20090418, end: 20090713
  2. ANGIOTENSIN II RECEPTOR BLOCKERS [Concomitant]
  3. CALCIUM ANTAGONIST             (CALCIUM ANTAGONIST) [Concomitant]
  4. DIURETICS          (DIURETICS) [Concomitant]
  5. ALPHA-ADRENERGIC ANTAGONIST (ALPHA-ADRENERGIC ANTAGONIST) [Concomitant]

REACTIONS (3)
  - CARDIAC FAILURE [None]
  - CONDITION AGGRAVATED [None]
  - HYPERTENSION [None]
